FAERS Safety Report 5673291-7 (Version None)
Quarter: 2008Q1

REPORT INFORMATION
  Report Type: 
  Country: None (occurrence: None)
  Receive Date: 20080319
  Receipt Date: 20080307
  Transmission Date: 20080703
  Serious: Yes (Other)
  Sender: FDA-Public Use
  Company Number: US-ELI_LILLY_AND_COMPANY-US200803002113

PATIENT
  Sex: Female

DRUGS (10)
  1. FORTEO [Suspect]
  2. PREDNISONE [Concomitant]
  3. NEURONTIN [Concomitant]
  4. HYDROCODONE BITARTRATE [Concomitant]
  5. PRANDIN [Concomitant]
  6. DYAZIDE [Concomitant]
  7. LANOXIN [Concomitant]
  8. ZOCOR [Concomitant]
  9. SYNTHROID [Concomitant]
  10. PRILOSEC [Concomitant]

REACTIONS (5)
  - ARTHRITIS [None]
  - ASTHENIA [None]
  - BODY TEMPERATURE INCREASED [None]
  - INFLUENZA [None]
  - LOSS OF CONSCIOUSNESS [None]
